FAERS Safety Report 7519528-0 (Version None)
Quarter: 2011Q2

REPORT INFORMATION
  Report Type: 
  Country: None (occurrence: None)
  Receive Date: 20110524
  Receipt Date: 20110513
  Transmission Date: 20111010
  Serious: Yes (Hospitalization)
  Sender: FDA-Public Use
  Company Number: CIP11001221

PATIENT
  Sex: Female

DRUGS (1)
  1. ACTONEL [Suspect]
     Dosage: 150 MG, ORAL
     Route: 048
     Dates: start: 20101101, end: 20110101

REACTIONS (2)
  - FEELING ABNORMAL [None]
  - KIDNEY INFECTION [None]
